FAERS Safety Report 12714029 (Version 10)
Quarter: 2017Q4

REPORT INFORMATION
  Report Type: Spontaneous
  Country: HU (occurrence: HU)
  Receive Date: 20160905
  Receipt Date: 20171123
  Transmission Date: 20180320
  Serious: Yes (Other)
  Sender: FDA-Public Use
  Company Number: HU-PFIZER INC-2016341790

PATIENT
  Age: 65 Year
  Sex: Male

DRUGS (2)
  1. SUTENT [Suspect]
     Active Substance: SUNITINIB MALATE
     Indication: CLEAR CELL RENAL CELL CARCINOMA
     Dosage: 50 MG, CYCLIC (DAILY, 4 WEEKS TAKING, 2 WEEKS BREAK)
     Route: 048
     Dates: start: 20160621
  2. SUTENT [Suspect]
     Active Substance: SUNITINIB MALATE
     Dosage: 50 MG, CYCLIC (DAILY, ACCORDING TO 2 WEEKS TAKING, 1 WEEK BREAK)
     Route: 048

REACTIONS (14)
  - Mucosal inflammation [Recovered/Resolved]
  - Stomatitis [Recovered/Resolved]
  - Pain in extremity [Not Recovered/Not Resolved]
  - Nausea [Recovered/Resolved]
  - Hypertension [Recovered/Resolved]
  - Blood thyroid stimulating hormone increased [Recovered/Resolved]
  - Erythema [Recovered/Resolved]
  - Yellow skin [Not Recovered/Not Resolved]
  - Ejection fraction decreased [Unknown]
  - Haemorrhoid infection [Recovered/Resolved]
  - Heart rate increased [Recovered/Resolved]
  - Face oedema [Recovered/Resolved]
  - Scrotal inflammation [Recovered/Resolved]
  - Rash [Recovered/Resolved]
